FAERS Safety Report 9745557 (Version 2)
Quarter: 2013Q4

REPORT INFORMATION
  Report Type: Report from Study
  Country: CA (occurrence: CA)
  Receive Date: 20131211
  Receipt Date: 20131211
  Transmission Date: 20140711
  Serious: Yes (Hospitalization, Other)
  Sender: FDA-Public Use
  Company Number: CA-JNJFOC-20130613296

PATIENT
  Age: 65 Year
  Sex: Female
  Weight: 72.7 kg

DRUGS (6)
  1. REMICADE [Suspect]
     Indication: RHEUMATOID ARTHRITIS
     Route: 042
     Dates: start: 20090317, end: 20130620
  2. TYLENOL [Concomitant]
     Route: 065
  3. METHOTREXATE [Concomitant]
     Route: 065
  4. CLONAZEPAM [Concomitant]
     Route: 065
  5. MOTILIUM [Concomitant]
     Route: 065
  6. PREVACID [Concomitant]
     Route: 065

REACTIONS (3)
  - Pulmonary oedema [Not Recovered/Not Resolved]
  - Interstitial lung disease [Unknown]
  - Lymphoproliferative disorder [Unknown]
